FAERS Safety Report 4534920-4 (Version None)
Quarter: 2004Q4

REPORT INFORMATION
  Report Type: 
  Country: None (occurrence: None)
  Receive Date: 20041222
  Receipt Date: 20040805
  Transmission Date: 20050328
  Serious: No
  Sender: FDA-Public Use
  Company Number: US-BRISTOL-MYERS SQUIBB COMPANY-12661849

PATIENT
  Age: 66 Year
  Sex: Male
  Weight: 84 kg

DRUGS (5)
  1. PRAVACHOL [Suspect]
     Indication: BLOOD CHOLESTEROL INCREASED
     Route: 048
     Dates: start: 20040728
  2. UROXATRAL [Concomitant]
     Dates: start: 20040315
  3. FOLGARD [Concomitant]
  4. FLONASE [Concomitant]
  5. ASTELIN [Concomitant]

REACTIONS (1)
  - PAIN [None]
